FAERS Safety Report 15440812 (Version 1)
Quarter: 2018Q3

REPORT INFORMATION
  Report Type: Spontaneous
  Country: JP (occurrence: JP)
  Receive Date: 20180928
  Receipt Date: 20180928
  Transmission Date: 20181010
  Serious: Yes (Death)
  Sender: FDA-Public Use
  Company Number: JP-DSJP-DSJ-2018-142008

PATIENT

DRUGS (1)
  1. LIXIANA TABLETS [Suspect]
     Active Substance: EDOXABAN TOSYLATE
     Indication: HIP ARTHROPLASTY
     Dosage: UNK
     Route: 048

REACTIONS (1)
  - Death [Fatal]
